FAERS Safety Report 4892595-9 (Version None)
Quarter: 2006Q1

REPORT INFORMATION
  Report Type: 
  Country: None (occurrence: None)
  Receive Date: 20060126
  Receipt Date: 20060119
  Transmission Date: 20060701
  Serious: Yes (Hospitalization)
  Sender: FDA-Public Use
  Company Number: FR-ROCHE-432742

PATIENT
  Age: 91 Year
  Sex: Female

DRUGS (7)
  1. ROCEPHIN [Suspect]
     Indication: DRUG USE FOR UNKNOWN INDICATION
     Route: 042
     Dates: start: 20050128, end: 20050129
  2. AUGMENTIN [Suspect]
     Dosage: STRENGTH REPORTED AS 1 G/ 200 MG.
     Route: 042
     Dates: start: 20050127, end: 20050128
  3. STILNOX [Concomitant]
  4. HALDOL [Concomitant]
  5. FORLAX [Concomitant]
  6. SERESTA [Concomitant]
     Dosage: DRUG REPORTED AS SERESTA 10.
  7. DEROXAT [Concomitant]
     Route: 048

REACTIONS (4)
  - ACUTE GENERALISED EXANTHEMATOUS PUSTULOSIS [None]
  - HYPERSENSITIVITY [None]
  - RASH ERYTHEMATOUS [None]
  - SKIN EXFOLIATION [None]
